FAERS Safety Report 4664941-2 (Version None)
Quarter: 2005Q2

REPORT INFORMATION
  Report Type: 
  Country: None (occurrence: None)
  Receive Date: 20050517
  Receipt Date: 20050511
  Transmission Date: 20051028
  Serious: Yes (Life-Threatening)
  Sender: FDA-Public Use
  Company Number: GBS050417179

PATIENT
  Age: 67 Year
  Sex: Female
  Weight: 86 kg

DRUGS (14)
  1. XIGRIS [Suspect]
     Indication: SEPSIS
     Dosage: 24 UG/KG/HR
     Dates: start: 20050412, end: 20050414
  2. CEFUROXIME [Concomitant]
  3. RANITIDINE [Concomitant]
  4. FLOLAN (EPOPROSTENOL) [Concomitant]
  5. METRONIDAZOLE [Concomitant]
  6. GENTAMICIN [Concomitant]
  7. TAZOCIN [Concomitant]
  8. IMIPENEM [Concomitant]
  9. AMIKACIN [Concomitant]
  10. ENOXAPARIN SODIUM [Concomitant]
  11. HEPARIN [Concomitant]
  12. HYDROCORTISONE [Concomitant]
  13. METOCLOPRAMIDE [Concomitant]
  14. VASOPRESSIN INJECTION [Concomitant]

REACTIONS (1)
  - THROMBOCYTOPENIA [None]
